FAERS Safety Report 17187813 (Version 2)
Quarter: 2025Q3

REPORT INFORMATION
  Report Type: Report from Study
  Country: EU (occurrence: EU)
  Receive Date: 20191221
  Receipt Date: 20250705
  Transmission Date: 20251021
  Serious: Yes (Other)
  Sender: AUROBINDO
  Company Number: EU-SA-2018SA269780

PATIENT
  Age: 2 Year
  Sex: Male

DRUGS (1)
  1. LORATADINE [Suspect]
     Active Substance: LORATADINE
     Indication: Product used for unknown indication
     Route: 065

REACTIONS (4)
  - Autoimmune haemolytic anaemia [Unknown]
  - Diarrhoea [Unknown]
  - Pyrexia [Unknown]
  - Asthenia [Unknown]
